FAERS Safety Report 9890947 (Version 1)
Quarter: 2014Q1

REPORT INFORMATION
  Report Type: Spontaneous
  Country: IL (occurrence: None)
  Receive Date: 20140210
  Receipt Date: 20140210
  Transmission Date: 20141002
  Serious: Yes (Hospitalization)
  Sender: FDA-Public Use
  Company Number: SYM-2014-15549

PATIENT
  Age: 51 Year
  Sex: Male

DRUGS (1)
  1. DICLOFENAC (DICLOFENAC) [Suspect]
     Indication: BACK PAIN
     Route: 030

REACTIONS (6)
  - Restlessness [None]
  - Abdominal pain upper [None]
  - Blood pressure decreased [None]
  - Acute coronary syndrome [None]
  - Acute myocardial infarction [None]
  - Heart rate increased [None]
